FAERS Safety Report 22093060 (Version 1)
Quarter: 2023Q1

REPORT INFORMATION
  Report Type: Spontaneous
  Country: US (occurrence: US)
  Receive Date: 20230314
  Receipt Date: 20230314
  Transmission Date: 20230418
  Serious: No
  Sender: FDA-Public Use
  Company Number: US-JNJFOC-20230324285

PATIENT
  Age: 41 Year
  Sex: Female
  Weight: 56.7 kg

DRUGS (3)
  1. OPSUMIT [Suspect]
     Active Substance: MACITENTAN
     Indication: Pulmonary arterial hypertension
     Route: 048
  2. REMODULIN [Suspect]
     Active Substance: TREPROSTINIL
     Indication: Pulmonary arterial hypertension
     Route: 042
     Dates: start: 20210419
  3. REMODULIN [Suspect]
     Active Substance: TREPROSTINIL
     Route: 042

REACTIONS (2)
  - Pain in jaw [Unknown]
  - Pain in extremity [Unknown]
